FAERS Safety Report 5406819-2 (Version None)
Quarter: 2007Q3

REPORT INFORMATION
  Report Type: 
  Country: None (occurrence: None)
  Receive Date: 20070807
  Receipt Date: 20070727
  Transmission Date: 20080115
  Serious: Yes (Other)
  Sender: FDA-Public Use
  Company Number: DE-ELI_LILLY_AND_COMPANY-DE200707002833

PATIENT
  Age: 25 Year
  Sex: Male

DRUGS (5)
  1. ZYPREXA [Suspect]
     Dosage: 20 MG, UNKNOWN
     Route: 048
     Dates: start: 20061201
  2. ZOPICLON [Concomitant]
     Dosage: UNK, UNKNOWN
     Route: 065
  3. TREVILOR [Concomitant]
     Dosage: UNK, UNKNOWN
     Route: 065
  4. TAVOR [Concomitant]
     Dosage: UNK, UNKNOWN
     Route: 065
  5. XIMOVAN [Concomitant]
     Dosage: UNK, UNKNOWN
     Route: 065

REACTIONS (3)
  - MEAN CELL HAEMOGLOBIN [None]
  - MEAN CELL VOLUME INCREASED [None]
  - RED BLOOD CELL COUNT DECREASED [None]
